FAERS Safety Report 8556147 (Version 3)
Quarter: 2013Q3

REPORT INFORMATION
  Report Type: Spontaneous
  Country: US (occurrence: None)
  Receive Date: 20120501
  Receipt Date: 20130708
  Transmission Date: 20140515
  Serious: Yes (Other)
  Sender: FDA-Public Use
  Company Number: 2012-191

PATIENT
  Age: 64 Year
  Sex: Female

DRUGS (4)
  1. PRIALT [Suspect]
     Indication: PAIN
     Dosage: UNK UG, ONCE/HOUR, INTRATHECAL
     Route: 037
     Dates: end: 20120307
  2. BUPIVACAINE HYDROCHLORIDE [Suspect]
     Dosage: UNK MG, ONCE/HOUR, INTRATHECAL
     Route: 037
  3. FENTANYL [Suspect]
     Dosage: UNK UG, ONCE/HOUR, INTRATHECAL
     Route: 037
  4. MORPHINE [Suspect]
     Dosage: UNK MG, ONCE/HOUR, INTRATHECAL
     Route: 037

REACTIONS (14)
  - Deep vein thrombosis [None]
  - Glossodynia [None]
  - Gastrointestinal hypomotility [None]
  - Syncope [None]
  - Abdominal discomfort [None]
  - Pain [None]
  - Headache [None]
  - Burning sensation [None]
  - Malaise [None]
  - Ophthalmoplegia [None]
  - Loss of consciousness [None]
  - Device kink [None]
  - Anxiety [None]
  - Asthenia [None]
